FAERS Safety Report 21075615 (Version 1)
Quarter: 2022Q3

REPORT INFORMATION
  Report Type: Spontaneous
  Country: US (occurrence: None)
  Receive Date: 20220712
  Receipt Date: 20220712
  Transmission Date: 20221027
  Serious: Yes (Other)
  Sender: FDA-Public Use
  Company Number: None

PATIENT
  Age: 56 Year
  Sex: Female
  Weight: 99 kg

DRUGS (11)
  1. EMGALITY [Suspect]
     Active Substance: GALCANEZUMAB-GNLM
     Indication: Cluster headache
     Dosage: FREQUENCY : MONTHLY;?
     Route: 058
     Dates: start: 20220709, end: 20220710
  2. venlafaxine XR 150mg cap [Concomitant]
  3. PROMETHAZINE [Concomitant]
     Active Substance: PROMETHAZINE HYDROCHLORIDE
  4. morphine 15mg tab [Concomitant]
  5. metformin 500mg SA tab [Concomitant]
  6. magnesium 420mg tab [Concomitant]
  7. LISINOPRIL [Concomitant]
     Active Substance: LISINOPRIL
  8. levothyroxine 100mcg tab [Concomitant]
  9. HCTZ/triam 37.5mg tab [Concomitant]
  10. clonazepam 1mg tab [Concomitant]
  11. cholecalciferol 400 unit tab [Concomitant]

REACTIONS (7)
  - Nausea [None]
  - Gastrointestinal pain [None]
  - Fatigue [None]
  - Tension headache [None]
  - Anxiety [None]
  - Pain [None]
  - Tinnitus [None]

NARRATIVE: CASE EVENT DATE: 20220709
